FAERS Safety Report 22632903 (Version 1)
Quarter: 2023Q2

REPORT INFORMATION
  Report Type: Spontaneous
  Country: BR (occurrence: BR)
  Receive Date: 20230623
  Receipt Date: 20230623
  Transmission Date: 20230722
  Serious: Yes (Other)
  Sender: FDA-Public Use
  Company Number: None

PATIENT
  Age: 52 Year
  Sex: Female
  Weight: 84 kg

DRUGS (15)
  1. KEYTRUDA [Suspect]
     Active Substance: PEMBROLIZUMAB
     Indication: Breast cancer
     Dosage: 200 MG EVERY 21 DAYS. THE INTERVAL BETWEEN CYCLES IS 21 DAYS
     Route: 042
     Dates: start: 20230427, end: 20230427
  2. CARBOPLATIN [Suspect]
     Active Substance: CARBOPLATIN
     Indication: Breast cancer
     Dosage: 1.5 AUC ON D1, D8 AND D15 OF EACH CYCLE. THE INTERVAL BETWEEN CYCLES IS 21 DAYS. PROGRAMMED A TOTAL
     Route: 042
     Dates: start: 20230411, end: 20230411
  3. CARBOPLATIN [Suspect]
     Active Substance: CARBOPLATIN
     Dosage: 1.5 AUC ON D1, D8 AND D15 OF EACH CYCLE. THE INTERVAL BETWEEN CYCLES IS 21 DAYS. PROGRAMMED A TOTAL
     Route: 042
     Dates: start: 20230411, end: 20230411
  4. CARBOPLATIN [Suspect]
     Active Substance: CARBOPLATIN
     Dosage: 1.5 AUC ON D1, D8 AND D15 OF EACH CYCLE. THE INTERVAL BETWEEN CYCLES IS 21 DAYS. PROGRAMMED A TOTAL
     Route: 042
     Dates: start: 20230419, end: 20230419
  5. CARBOPLATIN [Suspect]
     Active Substance: CARBOPLATIN
     Dosage: 1.5 AUC ON D1, D8 AND D15 OF EACH CYCLE. THE INTERVAL BETWEEN CYCLES IS 21 DAYS. PROGRAMMED A TOTAL
     Route: 042
     Dates: start: 20230419, end: 20230419
  6. CARBOPLATIN [Suspect]
     Active Substance: CARBOPLATIN
     Dosage: 1.5 AUC ON D1, D8 AND D15 OF EACH CYCLE. THE INTERVAL BETWEEN CYCLES IS 21 DAYS. PROGRAMMED A TOTAL
     Route: 042
     Dates: start: 20230427, end: 20230427
  7. CARBOPLATIN [Suspect]
     Active Substance: CARBOPLATIN
     Dosage: 1.5 AUC ON D1, D8 AND D15 OF EACH CYCLE. THE INTERVAL BETWEEN CYCLES IS 21 DAYS. PROGRAMMED A TOTAL
     Route: 042
     Dates: start: 20230427, end: 20230427
  8. CARBOPLATIN [Suspect]
     Active Substance: CARBOPLATIN
     Dosage: 1.5 AUC ON D1, D8 AND D15 OF EACH CYCLE. THE INTERVAL BETWEEN CYCLES IS 21 DAYS. PROGRAMMED A TOTAL
     Route: 042
     Dates: start: 20230516, end: 20230516
  9. CARBOPLATIN [Suspect]
     Active Substance: CARBOPLATIN
     Dosage: 1.5 AUC ON D1, D8 AND D15 OF EACH CYCLE. THE INTERVAL BETWEEN CYCLES IS 21 DAYS. PROGRAMMED A TOTAL
     Route: 042
     Dates: start: 20230516, end: 20230516
  10. PACLITAXEL [Suspect]
     Active Substance: PACLITAXEL
     Indication: Breast cancer
     Dosage: 80 MG/M? ON D1, D8 AND D15 OF EACH CYCLE. THE INTERVAL BETWEEN CYCLES IS 21 DAYS. PROGRAMMED A TOTAL
     Route: 042
     Dates: start: 20230411, end: 20230411
  11. PACLITAXEL [Suspect]
     Active Substance: PACLITAXEL
     Dosage: 80 MG/M? ON D1, D8 AND D15 OF EACH CYCLE. THE INTERVAL BETWEEN CYCLES IS 21 DAYS. PROGRAMMED A TOTAL
     Route: 042
     Dates: start: 20230419, end: 20230419
  12. PACLITAXEL [Suspect]
     Active Substance: PACLITAXEL
     Dosage: 80 MG/M? ON D1, D8 AND D15 OF EACH CYCLE. THE INTERVAL BETWEEN CYCLES IS 21 DAYS. PROGRAMMED A TOTAL
     Route: 042
     Dates: start: 20230427, end: 20230427
  13. PACLITAXEL [Suspect]
     Active Substance: PACLITAXEL
     Dosage: 80 MG/M? ON D1, D8 AND D15 OF EACH CYCLE. THE INTERVAL BETWEEN CYCLES IS 21 DAYS. PROGRAMMED A TOTAL
     Route: 042
     Dates: start: 20230516, end: 20230516
  14. PACLITAXEL [Suspect]
     Active Substance: PACLITAXEL
     Dosage: 80 MG/M? ON D1, D8 AND D15 OF EACH CYCLE. THE INTERVAL BETWEEN CYCLES IS 21 DAYS. PROGRAMMED A TOTAL
     Route: 042
     Dates: start: 20230526, end: 20230526
  15. PACLITAXEL [Suspect]
     Active Substance: PACLITAXEL
     Dosage: 80 MG/M? ON D1, D8 AND D15 OF EACH CYCLE. THE INTERVAL BETWEEN CYCLES IS 21 DAYS. PROGRAMMED A TOTAL
     Route: 042
     Dates: start: 20230605, end: 20230605

REACTIONS (1)
  - Neutropenia [Not Recovered/Not Resolved]

NARRATIVE: CASE EVENT DATE: 20230416
